FAERS Safety Report 7036361-7 (Version None)
Quarter: 2010Q4

REPORT INFORMATION
  Report Type: 
  Country: None (occurrence: None)
  Receive Date: 20101008
  Receipt Date: 20100930
  Transmission Date: 20110411
  Serious: Yes (Hospitalization, Other)
  Sender: FDA-Public Use
  Company Number: GB-MERCK-1008GBR00058

PATIENT
  Age: 63 Year
  Sex: Male
  Weight: 96 kg

DRUGS (3)
  1. EMEND [Suspect]
     Route: 048
     Dates: start: 20100701
  2. EMEND [Suspect]
     Route: 048
     Dates: start: 20100802, end: 20100802
  3. CYCLOSPORINE [Concomitant]
     Route: 065
     Dates: end: 20100802

REACTIONS (1)
  - TRANSIENT ISCHAEMIC ATTACK [None]
